FAERS Safety Report 16745510 (Version 2)
Quarter: 2019Q3

REPORT INFORMATION
  Report Type: Spontaneous
  Country: US (occurrence: US)
  Receive Date: 20190827
  Receipt Date: 20190912
  Transmission Date: 20191005
  Serious: No
  Sender: FDA-Public Use
  Company Number: US-PFIZER INC-2019364981

PATIENT
  Age: 60 Year

DRUGS (2)
  1. HYDROMORPHONE HYDROCHLORIDE. [Suspect]
     Active Substance: HYDROMORPHONE HYDROCHLORIDE
     Dosage: UNK
  2. VIOXX [Suspect]
     Active Substance: ROFECOXIB

REACTIONS (2)
  - Drug hypersensitivity [Unknown]
  - Hallucination [Unknown]
